FAERS Safety Report 9014258 (Version 1)
Quarter: 2013Q1

REPORT INFORMATION
  Report Type: Spontaneous
  Country: US (occurrence: US)
  Receive Date: 20130115
  Receipt Date: 20130115
  Transmission Date: 20140127
  Serious: Yes (Other)
  Sender: FDA-Public Use
  Company Number: US-ROCHE-1177666

PATIENT
  Age: 41 Year
  Sex: Male

DRUGS (5)
  1. XOLAIR [Suspect]
     Indication: ASTHMA
     Route: 058
     Dates: end: 200805
  2. ALBUTEROL [Concomitant]
  3. ADVAIR [Concomitant]
  4. PREDNISONE [Concomitant]
  5. SPIRIVA [Concomitant]

REACTIONS (9)
  - Dyspnoea [Unknown]
  - Hyperhidrosis [Unknown]
  - Pyrexia [Unknown]
  - Dyspepsia [Unknown]
  - Epistaxis [Unknown]
  - Increased bronchial secretion [Unknown]
  - Dizziness [Unknown]
  - Musculoskeletal pain [Unknown]
  - Pruritus [Unknown]
